FAERS Safety Report 5197153-7 (Version None)
Quarter: 2007Q1

REPORT INFORMATION
  Report Type: 
  Country: None (occurrence: None)
  Receive Date: 20070103
  Receipt Date: 20061227
  Transmission Date: 20070707
  Serious: Yes (Life-Threatening)
  Sender: FDA-Public Use
  Company Number: JP-JPN-A200605205

PATIENT
  Age: 85 Year
  Sex: Female
  Weight: 50 kg

DRUGS (15)
  1. VALTREX [Suspect]
     Indication: HERPES ZOSTER
     Dosage: 1000MG THREE TIMES PER DAY
     Route: 048
     Dates: start: 20061202, end: 20061205
  2. CONSTAN [Suspect]
     Indication: INSOMNIA
     Dosage: 1TAB PER DAY
     Route: 048
     Dates: start: 20061101, end: 20061205
  3. VESICARE [Suspect]
     Indication: HYPERTONIC BLADDER
     Dosage: 1TAB PER DAY
     Route: 048
     Dates: start: 20061101, end: 20061205
  4. ADALAT [Concomitant]
     Indication: HYPERTENSION
     Route: 048
     Dates: end: 20061205
  5. TAKEPRON [Concomitant]
     Indication: DRUG USE FOR UNKNOWN INDICATION
     Route: 048
  6. MARZULENE [Concomitant]
     Indication: GASTRITIS
     Route: 048
     Dates: end: 20061205
  7. URSO [Concomitant]
     Indication: DRUG USE FOR UNKNOWN INDICATION
     Route: 048
     Dates: end: 20061205
  8. SERENAL [Concomitant]
     Indication: NEUROSIS
     Route: 048
     Dates: end: 20061205
  9. MUCOSTA [Concomitant]
     Indication: GASTRITIS
     Route: 048
     Dates: end: 20061205
  10. COMELIAN [Concomitant]
     Indication: ANGINA PECTORIS
     Route: 048
     Dates: end: 20061205
  11. SOLANAX [Concomitant]
     Indication: INSOMNIA
     Route: 048
     Dates: end: 20061031
  12. ORYZANOL [Concomitant]
     Indication: DRUG USE FOR UNKNOWN INDICATION
     Route: 048
  13. ASCORBIC ACID [Concomitant]
     Indication: DRUG USE FOR UNKNOWN INDICATION
     Route: 065
  14. UNKNOWN DRUG [Concomitant]
     Indication: DRUG USE FOR UNKNOWN INDICATION
     Route: 048
  15. DETRUSITOL [Concomitant]
     Indication: POLLAKIURIA
     Route: 048
     Dates: end: 20061031

REACTIONS (4)
  - DEPRESSED LEVEL OF CONSCIOUSNESS [None]
  - FEELING ABNORMAL [None]
  - RENAL FAILURE ACUTE [None]
  - SOMNOLENCE [None]
